FAERS Safety Report 11099512 (Version 2)
Quarter: 2015Q2

REPORT INFORMATION
  Report Type: Spontaneous
  Country: US (occurrence: US)
  Receive Date: 20150508
  Receipt Date: 20150610
  Transmission Date: 20150821
  Serious: No
  Sender: FDA-Public Use
  Company Number: US-BIOGENIDEC-2015BI059359

PATIENT
  Sex: Female

DRUGS (16)
  1. ADVIL [Concomitant]
     Active Substance: IBUPROFEN
  2. TECFIDERA [Suspect]
     Active Substance: DIMETHYL FUMARATE
     Indication: MULTIPLE SCLEROSIS
     Route: 048
  3. COENZYME Q10 [Concomitant]
     Active Substance: UBIDECARENONE
  4. PRAVACHOL [Concomitant]
     Active Substance: PRAVASTATIN SODIUM
  5. TUMS [Concomitant]
     Active Substance: CALCIUM CARBONATE
  6. MAGNESIUM ASPARTATE [Concomitant]
     Active Substance: MAGNESIUM ASPARTATE
  7. MULTIVITAL [Concomitant]
  8. AMPYRA [Concomitant]
     Active Substance: DALFAMPRIDINE
  9. BACLOFEN. [Concomitant]
     Active Substance: BACLOFEN
  10. DIAZEPAM. [Concomitant]
     Active Substance: DIAZEPAM
  11. GAS-X [Concomitant]
     Active Substance: DIMETHICONE
  12. TEGRETOL [Concomitant]
     Active Substance: CARBAMAZEPINE
  13. MAALOX CHILDRENS [Concomitant]
  14. TAMILFU [Concomitant]
  15. TYLENOL 8 HR [Concomitant]
     Active Substance: ACETAMINOPHEN
  16. VITAMIN D [Concomitant]
     Active Substance: CHOLECALCIFEROL

REACTIONS (1)
  - Drug ineffective [Unknown]
